FAERS Safety Report 11493111 (Version 1)
Quarter: 2015Q3

REPORT INFORMATION
  Report Type: Spontaneous
  Country: None (occurrence: None)
  Receive Date: 20150910
  Receipt Date: 20150910
  Transmission Date: 20151125
  Serious: Yes (Other)
  Sender: FDA-Public Use
  Company Number: None

PATIENT
  Age: 35 Year
  Sex: Female

DRUGS (1)
  1. CHANTIX [Suspect]
     Active Substance: VARENICLINE TARTRATE
     Indication: SMOKING CESSATION THERAPY
     Dosage: 1 PILL
     Route: 048
     Dates: start: 20150905, end: 20150909

REACTIONS (2)
  - Suicidal ideation [None]
  - Depression [None]

NARRATIVE: CASE EVENT DATE: 20150909
